FAERS Safety Report 8054953-3 (Version None)
Quarter: 2012Q1

REPORT INFORMATION
  Report Type: 
  Country: None (occurrence: None)
  Receive Date: 20120119
  Receipt Date: 20120109
  Transmission Date: 20120608
  Serious: Yes (Other)
  Sender: FDA-Public Use
  Company Number: US-ELI_LILLY_AND_COMPANY-US201201003549

PATIENT
  Age: 45 Year
  Sex: Female

DRUGS (1)
  1. CYMBALTA [Suspect]
     Indication: DEPRESSION
     Dosage: 30 MG, QD
     Dates: start: 20100101, end: 20111201

REACTIONS (16)
  - INTENTIONAL DRUG MISUSE [None]
  - DECREASED APPETITE [None]
  - INFLUENZA LIKE ILLNESS [None]
  - ACCOMMODATION DISORDER [None]
  - PERIPHERAL COLDNESS [None]
  - FEELING ABNORMAL [None]
  - WITHDRAWAL SYNDROME [None]
  - SUICIDAL IDEATION [None]
  - SALT CRAVING [None]
  - DEPRESSION [None]
  - NIGHTMARE [None]
  - DYSKINESIA [None]
  - DRUG WITHDRAWAL HEADACHE [None]
  - VOMITING [None]
  - HYPOAESTHESIA [None]
  - INSOMNIA [None]
